FAERS Safety Report 7903396-9 (Version None)
Quarter: 2011Q4

REPORT INFORMATION
  Report Type: 
  Country: None (occurrence: None)
  Receive Date: 20111109
  Receipt Date: 20111024
  Transmission Date: 20120403
  Serious: Yes (Other)
  Sender: FDA-Public Use
  Company Number: US-AMGEN-USASP2011038047

PATIENT
  Age: 57 Year
  Sex: Female

DRUGS (7)
  1. TYLENOL (CAPLET) [Concomitant]
     Dosage: 325 MG, UNK
  2. ENBREL [Suspect]
     Indication: JUVENILE ARTHRITIS
     Dosage: 50 MG, WEEKLY
     Route: 058
     Dates: start: 19991001, end: 20100901
  3. NAPROXEN [Concomitant]
     Dosage: 250 MG, 2X/DAY
  4. PREDNISONE [Concomitant]
     Dosage: 5 MG, 2X/DAY
  5. ENBREL [Suspect]
     Dosage: 50 MG, WEEKLY
     Route: 058
     Dates: end: 20110706
  6. DIAZIDE                            /00007602/ [Concomitant]
     Indication: OEDEMA
  7. PRILOSEC [Concomitant]
     Dosage: 20 MG, 1X/DAY

REACTIONS (2)
  - VITILIGO [None]
  - SKIN CANCER [None]
